FAERS Safety Report 4645577-6 (Version None)
Quarter: 2005Q2

REPORT INFORMATION
  Report Type: 
  Country: None (occurrence: None)
  Receive Date: 20050331
  Receipt Date: 20050125
  Transmission Date: 20051028
  Serious: Yes (Hospitalization)
  Sender: FDA-Public Use
  Company Number: 05P-163-0287113

PATIENT
  Age: 77 Year
  Sex: Female
  Weight: 52.1637 kg

DRUGS (6)
  1. HUMIRA [Suspect]
     Indication: RHEUMATOID ARTHRITIS
     Dosage: 40 MG, 1 IN 2 WK, SUBCUTANEOUS
     Route: 058
     Dates: start: 20040527, end: 20040728
  2. LEVOTHYROXINE SODIUM [Concomitant]
  3. LEFLUNUMIDE [Concomitant]
  4. PREDNISONE [Concomitant]
  5. ATENOLOL [Concomitant]
  6. COUMADIN [Concomitant]

REACTIONS (5)
  - BLISTER [None]
  - RASH [None]
  - RASH VESICULAR [None]
  - WOUND INFECTION [None]
  - WOUND SECRETION [None]
